FAERS Safety Report 7291962-6 (Version None)
Quarter: 2011Q1

REPORT INFORMATION
  Report Type: 
  Country: None (occurrence: None)
  Receive Date: 20110214
  Receipt Date: 20110201
  Transmission Date: 20110831
  Serious: Yes (Other)
  Sender: FDA-Public Use
  Company Number: US-GENENTECH-313612

PATIENT
  Sex: Female
  Weight: 73.63 kg

DRUGS (1)
  1. RITUXAN [Suspect]
     Indication: PRODUCT USED FOR UNKNOWN INDICATION

REACTIONS (6)
  - INFUSION RELATED REACTION [None]
  - DYSPHEMIA [None]
  - DYSPHONIA [None]
  - MUSCULAR WEAKNESS [None]
  - MYASTHENIA GRAVIS [None]
  - TREMOR [None]
